FAERS Safety Report 11424491 (Version 1)
Quarter: 2015Q3

REPORT INFORMATION
  Report Type: Spontaneous
  Country: US (occurrence: US)
  Receive Date: 20150827
  Receipt Date: 20150827
  Transmission Date: 20151125
  Serious: No
  Sender: FDA-Public Use
  Company Number: US-SA-2015SA092358

PATIENT
  Age: 70 Year
  Sex: Female

DRUGS (3)
  1. MULTAQ [Suspect]
     Active Substance: DRONEDARONE
     Indication: ATRIAL FIBRILLATION
     Route: 048
     Dates: start: 20150429, end: 20150508
  2. ELIQUIS [Concomitant]
     Active Substance: APIXABAN
     Indication: CEREBROVASCULAR ACCIDENT
     Route: 048
     Dates: start: 20150501
  3. DILTIAZEM [Concomitant]
     Active Substance: DILTIAZEM
     Indication: CEREBROVASCULAR ACCIDENT
     Route: 048
     Dates: start: 20150501

REACTIONS (12)
  - Dizziness [Recovered/Resolved]
  - Dyspnoea [Recovered/Resolved]
  - Dry eye [Recovered/Resolved]
  - Arrhythmia [Recovered/Resolved]
  - Anxiety [Recovered/Resolved]
  - Fatigue [Recovered/Resolved]
  - Depression [Recovered/Resolved]
  - Unevaluable event [Recovered/Resolved]
  - Thinking abnormal [Recovered/Resolved]
  - Chest discomfort [Recovered/Resolved]
  - Poverty of speech [Recovered/Resolved]
  - Palpitations [Recovered/Resolved]

NARRATIVE: CASE EVENT DATE: 20150429
